FAERS Safety Report 21263180 (Version 2)
Quarter: 2022Q4

REPORT INFORMATION
  Report Type: Other
  Country: CA (occurrence: CA)
  Receive Date: 20220828
  Receipt Date: 20221208
  Transmission Date: 20230113
  Serious: No
  Sender: FDA-Public Use
  Company Number: CA-TOLMAR, INC.-22CA036272

PATIENT
  Age: 75 Year
  Sex: Male

DRUGS (2)
  1. ELIGARD [Suspect]
     Active Substance: LEUPROLIDE ACETATE
     Indication: Prostate cancer
     Dosage: 22.5 MILLIGRAM, Q 3 MONTH
     Route: 058
     Dates: start: 20220819
  2. ELIGARD [Suspect]
     Active Substance: LEUPROLIDE ACETATE
     Dosage: 22.5 MILLIGRAM, Q 3 MONTH
     Route: 058
     Dates: start: 20221111

REACTIONS (8)
  - Injection site pain [Not Recovered/Not Resolved]
  - Dyspnoea [Unknown]
  - Hot flush [Unknown]
  - Hyperhidrosis [Unknown]
  - Libido decreased [Unknown]
  - Pollakiuria [Unknown]
  - Asthenia [Unknown]
  - Injection site mass [Unknown]

NARRATIVE: CASE EVENT DATE: 20221111
